FAERS Safety Report 19082988 (Version 1)
Quarter: 2021Q2

REPORT INFORMATION
  Report Type: Spontaneous
  Country: US (occurrence: US)
  Receive Date: 20210401
  Receipt Date: 20210401
  Transmission Date: 20210717
  Serious: No
  Sender: FDA-Public Use
  Company Number: US-BAYER-2021-115681

PATIENT
  Age: 77 Year
  Sex: Female

DRUGS (2)
  1. ADEMPAS [Suspect]
     Active Substance: RIOCIGUAT
     Dosage: 1 MG, TID
     Route: 048
     Dates: start: 20210322
  2. LASIX [Suspect]
     Active Substance: FUROSEMIDE
     Dates: start: 20210328

REACTIONS (2)
  - Asthenia [None]
  - Oedema peripheral [None]

NARRATIVE: CASE EVENT DATE: 20210322
